FAERS Safety Report 7762171-9 (Version None)
Quarter: 2011Q3

REPORT INFORMATION
  Report Type: 
  Country: None (occurrence: None)
  Receive Date: 20110920
  Receipt Date: 20090717
  Transmission Date: 20111222
  Serious: Yes (Other)
  Sender: FDA-Public Use
  Company Number: IE-ROCHE-644571

PATIENT
  Sex: Female
  Weight: 60.3 kg

DRUGS (6)
  1. BONIVA [Suspect]
     Indication: OSTEOPOROSIS
     Route: 048
     Dates: start: 20061031, end: 20101011
  2. PRAVASTATIN SODIUM [Concomitant]
     Route: 048
     Dates: start: 20021001
  3. ASPIRIN [Concomitant]
     Route: 048
     Dates: start: 19931201, end: 20101001
  4. LEXAPRO [Concomitant]
     Indication: ANXIETY
     Dosage: FREQUENCY: DAILY
     Route: 048
     Dates: start: 20040501
  5. EZETIMIBE [Concomitant]
     Dosage: FREQUENCY: DAILY
     Route: 048
     Dates: start: 20041001
  6. CALCIUM CARBONATE [Concomitant]
     Indication: OSTEOPOROSIS
     Route: 048
     Dates: start: 20050301, end: 20101011

REACTIONS (6)
  - OESOPHAGITIS [None]
  - COELIAC DISEASE [None]
  - DUODENITIS [None]
  - GASTRIC ULCER [None]
  - DIVERTICULITIS [None]
  - BREAST ENLARGEMENT [None]
